FAERS Safety Report 16972406 (Version 1)
Quarter: 2019Q4

REPORT INFORMATION
  Report Type: Spontaneous
  Country: US (occurrence: US)
  Receive Date: 20191029
  Receipt Date: 20191029
  Transmission Date: 20200122
  Serious: No
  Sender: FDA-Public Use
  Company Number: US-PRINSTON PHARMACEUTICAL INC.-2019PRN00159

PATIENT
  Age: 60 Year
  Sex: Female
  Weight: 62.59 kg

DRUGS (2)
  1. IRBESARTAN (JUBILANT) [Suspect]
     Active Substance: IRBESARTAN
  2. IRBESARTAN. [Suspect]
     Active Substance: IRBESARTAN
     Indication: HYPERTENSION
     Dosage: 300 MG, 1X/DAY
     Dates: end: 20190131

REACTIONS (6)
  - Oropharyngeal pain [Recovering/Resolving]
  - Recalled product administered [Recovered/Resolved]
  - Bronchitis [Recovering/Resolving]
  - Dystonia [Unknown]
  - Insomnia [Unknown]
  - Cough [Recovering/Resolving]

NARRATIVE: CASE EVENT DATE: 201811
